FAERS Safety Report 7742621-4 (Version None)
Quarter: 2011Q3

REPORT INFORMATION
  Report Type: 
  Country: None (occurrence: None)
  Receive Date: 20110912
  Receipt Date: 20110901
  Transmission Date: 20111222
  Serious: Yes (Hospitalization)
  Sender: FDA-Public Use
  Company Number: US-UCBSA-040575

PATIENT
  Sex: Female
  Weight: 52 kg

DRUGS (7)
  1. VIMPAT [Suspect]
     Indication: EPILEPSY
     Route: 048
     Dates: start: 20110622
  2. INVESTIGATIONAL DRUG (PERAMPANEL) [Suspect]
     Indication: EPILEPSY
     Route: 048
  3. INVESTIGATIONAL DRUG (PERAMPANEL) [Suspect]
     Route: 048
  4. KLONOPIN [Suspect]
     Indication: EPILEPSY
     Route: 048
     Dates: start: 20090101
  5. TRILEPTAL [Suspect]
     Indication: EPILEPSY
     Route: 048
     Dates: start: 20060101
  6. DIASTAT [Concomitant]
     Indication: EPILEPSY
     Dosage: 12.5 AS REQUIRED
  7. ZONEGRAN [Suspect]
     Dosage: 200 MG IN THE MORNING AND 300 MG IN THE EVENING.
     Route: 048
     Dates: start: 20050101

REACTIONS (1)
  - CONVULSION [None]
